FAERS Safety Report 6028545-1 (Version None)
Quarter: 2008Q4

REPORT INFORMATION
  Report Type: 
  Country: None (occurrence: None)
  Receive Date: 20081231
  Receipt Date: 20081231
  Transmission Date: 20090506
  Serious: Yes (Hospitalization)
  Sender: FDA-Public Use
  Company Number: None

PATIENT
  Age: 56 Year
  Sex: Male
  Weight: 152.9 kg

DRUGS (2)
  1. MEPERIDINE HCL [Suspect]
     Indication: SEDATIVE THERAPY
     Dosage: 50 MG ONCE IV
     Route: 042
     Dates: start: 20080722, end: 20080722
  2. MIDAZOLAM HCL [Suspect]
     Indication: SEDATIVE THERAPY
     Dosage: 2 MG ONCE IV
     Route: 042
     Dates: start: 20080722, end: 20080722

REACTIONS (5)
  - ATRIAL FLUTTER [None]
  - ATRIOVENTRICULAR BLOCK SECOND DEGREE [None]
  - HYPOTENSION [None]
  - LEFT ATRIAL DILATATION [None]
  - TACHYCARDIA [None]
